FAERS Safety Report 10382689 (Version 1)
Quarter: 2014Q3

REPORT INFORMATION
  Report Type: Spontaneous
  Country: US (occurrence: US)
  Receive Date: 20140813
  Receipt Date: 20140813
  Transmission Date: 20150326
  Serious: Yes (Hospitalization)
  Sender: FDA-Public Use
  Company Number: US-B.I. PHARMACEUTICALS,INC./RIDGEFIELD-2014-BI-36844BP

PATIENT
  Age: 77 Year
  Sex: Female

DRUGS (16)
  1. CARVEDILOL. [Concomitant]
     Active Substance: CARVEDILOL
     Dosage: 6.27 MG
     Route: 048
  2. ZESTRIL [Concomitant]
     Active Substance: LISINOPRIL
     Dosage: 10 MG
     Route: 048
  3. CALCIUM PLUS D [Concomitant]
     Active Substance: CALCIUM\VITAMIN D
     Route: 065
  4. PRADAXA [Suspect]
     Active Substance: DABIGATRAN ETEXILATE MESYLATE
     Indication: ATRIAL FIBRILLATION
     Dosage: 150 MG
     Route: 048
     Dates: end: 20130918
  5. AMIODARONE [Concomitant]
     Active Substance: AMIODARONE
     Dosage: 200 MG
     Route: 048
  6. LASIX [Concomitant]
     Active Substance: FUROSEMIDE
     Dosage: 40 MG
     Route: 048
  7. SYMBICORT 160/4.5 [Concomitant]
     Dosage: 4 PUF
     Route: 055
  8. LIPITOR [Concomitant]
     Active Substance: ATORVASTATIN CALCIUM
     Dosage: 80 MG
     Route: 048
  9. BUDESONIDE. [Concomitant]
     Active Substance: BUDESONIDE
     Dosage: 0.5 MG
     Route: 055
  10. MULTIVITAMIN [Concomitant]
     Active Substance: VITAMINS
     Route: 065
  11. LORTAB 5/500 [Concomitant]
     Indication: PAIN
     Route: 048
  12. OMEPRAZOLE. [Concomitant]
     Active Substance: OMEPRAZOLE
     Dosage: 40 MG
     Route: 048
  13. DUONEBS [Concomitant]
     Route: 065
  14. MAG-OX [Concomitant]
     Dosage: 400 MG
     Route: 048
  15. EXTRA-STRENGTH TYLENOL [Concomitant]
     Route: 065
  16. VITAMIN D EXTRA [Concomitant]
     Dosage: 1000 U
     Route: 065

REACTIONS (2)
  - Haemorrhagic anaemia [Recovered/Resolved]
  - Gastrointestinal haemorrhage [Unknown]

NARRATIVE: CASE EVENT DATE: 201309
